FAERS Safety Report 11986322 (Version 1)
Quarter: 2016Q1

REPORT INFORMATION
  Report Type: Spontaneous
  Country: FR (occurrence: FR)
  Receive Date: 20160202
  Receipt Date: 20160202
  Transmission Date: 20160526
  Serious: Yes (Hospitalization)
  Sender: FDA-Public Use
  Company Number: FR-ROCHE-1702329

PATIENT
  Age: 67 Year
  Sex: Male

DRUGS (11)
  1. ASPEGIC [Suspect]
     Active Substance: ASPIRIN DL-LYSINE
     Indication: INFLUENZA
     Route: 065
     Dates: start: 20141201, end: 20141204
  2. EFAVIRENZ [Concomitant]
     Active Substance: EFAVIRENZ
     Dosage: STILL ONGOING ON 19-JAN-2016 WITHOUT RENAL REPERCUSSION
     Route: 065
  3. ATRIPLA [Suspect]
     Active Substance: EFAVIRENZ\EMTRICITABINE\TENOFOVIR DISOPROXIL FUMARATE
     Indication: HIV TEST POSITIVE
     Dosage: 600MG/200MG/245MG
     Route: 048
     Dates: start: 20100215, end: 20141204
  4. TAMIFLU [Suspect]
     Active Substance: OSELTAMIVIR PHOSPHATE
     Indication: INFLUENZA
     Route: 065
     Dates: start: 20141201, end: 20141204
  5. SUSTIVA [Concomitant]
     Active Substance: EFAVIRENZ
     Dosage: 1/DAY IN THE EVENING
     Route: 065
     Dates: end: 20151222
  6. TAVANIC [Concomitant]
     Active Substance: LEVOFLOXACIN
     Route: 048
  7. ROCEPHINE [Concomitant]
     Active Substance: CEFTRIAXONE SODIUM
     Route: 042
  8. DAFALGAN [Suspect]
     Active Substance: ACETAMINOPHEN
     Indication: INFLUENZA
     Route: 048
     Dates: start: 20141201, end: 20141204
  9. LAMIVUDINE. [Concomitant]
     Active Substance: LAMIVUDINE
  10. ZIDOVUDINE. [Concomitant]
     Active Substance: ZIDOVUDINE
     Dosage: STILL ONGOING ON 19-JAN-2016 WITHOUT RENAL REPERCUSSION
     Route: 065
  11. KIVEXA [Concomitant]
     Active Substance: ABACAVIR SULFATE\LAMIVUDINE
     Dosage: 1/DAY IN THE EVENING
     Route: 065
     Dates: end: 20151222

REACTIONS (1)
  - Acute kidney injury [Recovered/Resolved]

NARRATIVE: CASE EVENT DATE: 20141204
